FAERS Safety Report 9372862 (Version 2)
Quarter: 2013Q3

REPORT INFORMATION
  Report Type: Spontaneous
  Country: JP (occurrence: None)
  Receive Date: 20130614
  Receipt Date: 20130715
  Transmission Date: 20140515
  Serious: Yes (Other)
  Sender: FDA-Public Use
  Company Number: 2013036420

PATIENT
  Age: 54 Year
  Sex: Female

DRUGS (1)
  1. IVIG [Suspect]
     Indication: MILLER FISHER SYNDROME
     Route: 042

REACTIONS (8)
  - Drug ineffective [None]
  - Miller Fisher syndrome [None]
  - Disease recurrence [None]
  - Gait disturbance [None]
  - Areflexia [None]
  - Ophthalmoplegia [None]
  - Dysstasia [None]
  - Diplopia [None]
